FAERS Safety Report 7476163-0 (Version None)
Quarter: 2011Q2

REPORT INFORMATION
  Report Type: 
  Country: None (occurrence: None)
  Receive Date: 20110510
  Receipt Date: 20110510
  Transmission Date: 20111010
  Serious: Yes (Hospitalization)
  Sender: FDA-Public Use
  Company Number: None

PATIENT
  Age: 74 Year
  Sex: Male

DRUGS (9)
  1. SIMVASTATIN [Concomitant]
  2. CARDURA [Concomitant]
  3. LASIX [Concomitant]
  4. VIT B6 [Concomitant]
  5. XELODA [Suspect]
     Indication: COLON CANCER
     Dosage: 100MG/M2 BID 14 OUT OF 21 D PO
     Route: 048
  6. LISINOPRIL [Concomitant]
  7. HYDROXYZINE [Concomitant]
  8. AMARYL [Concomitant]
  9. METOPROLOO [Concomitant]

REACTIONS (8)
  - OESOPHAGITIS [None]
  - DYSPHAGIA [None]
  - DECREASED APPETITE [None]
  - DEHYDRATION [None]
  - DRY SKIN [None]
  - PAIN [None]
  - GASTROENTERITIS [None]
  - DIZZINESS [None]
